FAERS Safety Report 5190595-5 (Version None)
Quarter: 2006Q4

REPORT INFORMATION
  Report Type: 
  Country: None (occurrence: None)
  Receive Date: 20061222
  Receipt Date: 20060907
  Transmission Date: 20070319
  Serious: No
  Sender: FDA-Public Use
  Company Number: US-BRISTOL-MYERS SQUIBB COMPANY-13501291

PATIENT
  Age: 75 Year
  Sex: Female
  Weight: 77 kg

DRUGS (17)
  1. ORENCIA [Suspect]
     Indication: RHEUMATOID ARTHRITIS
     Route: 042
     Dates: start: 20060601
  2. PREDNISONE TAB [Concomitant]
  3. METHOTREXATE [Concomitant]
  4. MOBIC [Concomitant]
  5. NORVASC [Concomitant]
  6. HYDROCHLOROTHIAZIDE [Concomitant]
  7. NEURONTIN [Concomitant]
  8. MISOPROSTOL [Concomitant]
  9. FOLIC ACID [Concomitant]
  10. PREVACID [Concomitant]
  11. DARVOCET [Concomitant]
  12. MULTI-VITAMIN [Concomitant]
  13. CALCIUM [Concomitant]
  14. FLAXSEED [Concomitant]
  15. GARLIC [Concomitant]
  16. ASCORBIC ACID [Concomitant]
  17. VITAMIN E [Concomitant]

REACTIONS (1)
  - LOWER RESPIRATORY TRACT INFECTION [None]
